FAERS Safety Report 5775182-X (Version None)
Quarter: 2008Q2

REPORT INFORMATION
  Report Type: 
  Country: None (occurrence: None)
  Receive Date: 20080617
  Receipt Date: 20080616
  Transmission Date: 20081010
  Serious: Yes (Other)
  Sender: FDA-Public Use
  Company Number: B0523562A

PATIENT
  Sex: Female

DRUGS (1)
  1. NIQUITIN CQ CLEAR 21MG [Suspect]
     Dosage: 21MG PER DAY
     Route: 062
     Dates: start: 20080227, end: 20080229

REACTIONS (2)
  - DIZZINESS [None]
  - NAUSEA [None]
